FAERS Safety Report 8620694 (Version 7)
Quarter: 2013Q3

REPORT INFORMATION
  Report Type: Spontaneous
  Country: US (occurrence: US)
  Receive Date: 20120618
  Receipt Date: 20130910
  Transmission Date: 20140515
  Serious: Yes (Hospitalization, Disabling, Other)
  Sender: FDA-Public Use
  Company Number: US-009507513-1111USA02490

PATIENT
  Sex: Female
  Weight: 68.48 kg

DRUGS (8)
  1. FOSAMAX [Suspect]
     Indication: OSTEOPENIA
     Dosage: 70 MG, UNK
     Route: 048
     Dates: start: 20000225, end: 20030625
  2. FOSAMAX [Suspect]
     Dosage: 70 MG, QW
     Route: 048
     Dates: start: 20051027, end: 20071205
  3. RECLAST [Suspect]
     Dates: start: 20081203, end: 20091219
  4. BONIVA [Concomitant]
     Indication: OSTEOPENIA
     Dosage: UNK UNK, QM3
     Route: 042
     Dates: start: 20071213, end: 20080903
  5. NORVASC [Concomitant]
     Indication: HYPERTENSION
     Dates: start: 1991
  6. SYNTHROID [Concomitant]
     Indication: THYROID DISORDER
     Dates: start: 1991
  7. SIMVASTATIN [Concomitant]
     Indication: HYPERCHOLESTEROLAEMIA
     Route: 048
     Dates: start: 1991
  8. AVANDIA [Concomitant]

REACTIONS (39)
  - Exostosis of jaw [Unknown]
  - Dental caries [Unknown]
  - Dyslipidaemia [Unknown]
  - Anaemia [Unknown]
  - Vitamin B12 deficiency [Unknown]
  - Irritable bowel syndrome [Unknown]
  - Depression [Unknown]
  - Anxiety [Unknown]
  - Patella fracture [Unknown]
  - Vitamin D deficiency [Unknown]
  - Coronary artery disease [Unknown]
  - Artificial crown procedure [Unknown]
  - Transient ischaemic attack [Unknown]
  - Catheterisation cardiac [Unknown]
  - Muscular weakness [Unknown]
  - Urinary incontinence [Unknown]
  - Faecal incontinence [Unknown]
  - Urinary tract infection [Unknown]
  - Thrombocytopenia [Unknown]
  - Dyspnoea exertional [Unknown]
  - Renal disorder [Unknown]
  - Gastritis [Unknown]
  - Vertigo [Unknown]
  - Cerebral infarction [Unknown]
  - Myocardial infarction [Unknown]
  - Deafness [Unknown]
  - Cerebral infarction [Unknown]
  - Osteonecrosis of jaw [Unknown]
  - Fracture [Unknown]
  - Dental caries [Unknown]
  - Cataract [Unknown]
  - Exostosis of jaw [Unknown]
  - Osteoarthritis [Unknown]
  - Exostosis [Unknown]
  - Impaired healing [Unknown]
  - Gingivitis [Unknown]
  - Periodontal disease [Unknown]
  - Gingival bleeding [Unknown]
  - Oral disorder [Unknown]
